FAERS Safety Report 12564922 (Version 1)
Quarter: 2016Q3

REPORT INFORMATION
  Report Type: Spontaneous
  Country: US (occurrence: None)
  Receive Date: 20160715
  Receipt Date: 20160715
  Transmission Date: 20161109
  Serious: No
  Sender: FDA-Public Use
  Company Number: None

PATIENT
  Sex: Male

DRUGS (3)
  1. GLIPIZIDE. [Suspect]
     Active Substance: GLIPIZIDE
  2. ACARBOSE. [Suspect]
     Active Substance: ACARBOSE
  3. PIOGLITAZONE. [Suspect]
     Active Substance: PIOGLITAZONE

REACTIONS (2)
  - Blood glucose increased [None]
  - Drug ineffective [None]
